FAERS Safety Report 10948666 (Version 1)
Quarter: 2015Q1

REPORT INFORMATION
  Report Type: Spontaneous
  Country: DE (occurrence: DE)
  Receive Date: 20150324
  Receipt Date: 20150324
  Transmission Date: 20150721
  Serious: Yes (Other)
  Sender: FDA-Public Use
  Company Number: DE-SHIRE-DE201502309

PATIENT
  Age: 7 Year
  Sex: Male
  Weight: 26 kg

DRUGS (1)
  1. ELVANSE [Suspect]
     Active Substance: LISDEXAMFETAMINE DIMESYLATE
     Indication: ATTENTION DEFICIT/HYPERACTIVITY DISORDER
     Dosage: 30 MG, UNKNOWN (DAILY DOSE)
     Route: 048
     Dates: end: 2015

REACTIONS (4)
  - Illusion [Recovering/Resolving]
  - Suicidal ideation [Recovering/Resolving]
  - Acute psychosis [Recovering/Resolving]
  - Panic attack [Recovering/Resolving]

NARRATIVE: CASE EVENT DATE: 20150228
